FAERS Safety Report 7560710-4 (Version None)
Quarter: 2011Q2

REPORT INFORMATION
  Report Type: 
  Country: None (occurrence: None)
  Receive Date: 20110621
  Receipt Date: 20110616
  Transmission Date: 20111010
  Serious: No
  Sender: FDA-Public Use
  Company Number: US-PFIZER INC-2011133862

PATIENT
  Sex: Female

DRUGS (1)
  1. ZMAX [Suspect]
     Dosage: UNK
     Route: 048

REACTIONS (3)
  - DRY SKIN [None]
  - RASH [None]
  - SKIN DISORDER [None]
